FAERS Safety Report 20694311 (Version 2)
Quarter: 2022Q2

REPORT INFORMATION
  Report Type: Spontaneous
  Country: HK (occurrence: HK)
  Receive Date: 20220411
  Receipt Date: 20220422
  Transmission Date: 20220721
  Serious: Yes (Life-Threatening, Hospitalization, Other)
  Sender: FDA-Public Use
  Company Number: HK-CELLTRION INC.-2022HK004432

PATIENT

DRUGS (3)
  1. RITUXIMAB [Suspect]
     Active Substance: RITUXIMAB
     Indication: Nephrotic syndrome
     Dosage: AT LEAST 2 COURSES OF RITUXIMAB
  2. RITUXIMAB [Suspect]
     Active Substance: RITUXIMAB
     Dosage: AT LEAST 2 COURSES OF RITUXIMAB
  3. COTRIMOXAZOLE [Concomitant]
     Active Substance: SULFAMETHOXAZOLE\TRIMETHOPRIM
     Indication: Prophylaxis

REACTIONS (25)
  - Pneumonia viral [Unknown]
  - Agranulocytosis [Unknown]
  - Nephrotic syndrome [Unknown]
  - Disease recurrence [Unknown]
  - Rhabdomyosarcoma [Unknown]
  - Renal failure [Unknown]
  - Hypogammaglobulinaemia [Unknown]
  - Neutropenia [Unknown]
  - Hepatitis B [Recovered/Resolved]
  - Epstein-Barr virus infection [Not Recovered/Not Resolved]
  - Pneumonia [Unknown]
  - Infusion related reaction [Unknown]
  - Pneumocystis jirovecii pneumonia [Unknown]
  - Infection [Recovered/Resolved]
  - Immunosuppression [Unknown]
  - Ill-defined disorder [Unknown]
  - Post-depletion B-cell recovery [Unknown]
  - Stomatitis [Unknown]
  - Drug specific antibody present [Unknown]
  - Herpes zoster [Unknown]
  - Upper respiratory tract infection [Unknown]
  - Varicella [Unknown]
  - Infection [Recovered/Resolved]
  - Off label use [Unknown]
  - Drug effective for unapproved indication [Unknown]
